FAERS Safety Report 14022385 (Version 3)
Quarter: 2017Q4

REPORT INFORMATION
  Report Type: Spontaneous
  Country: GB (occurrence: GB)
  Receive Date: 20170928
  Receipt Date: 20171206
  Transmission Date: 20180321
  Serious: Yes (Life-Threatening, Disabling, Other)
  Sender: FDA-Public Use
  Company Number: GB-ASTRAZENECA-2017SE98507

PATIENT
  Age: 67 Year
  Sex: Male
  Weight: 87 kg

DRUGS (10)
  1. SIMVASTATIN. [Interacting]
     Active Substance: SIMVASTATIN
     Indication: MYOCARDIAL ISCHAEMIA
     Dosage: 80.0MG UNKNOWN
     Route: 048
     Dates: start: 19990101, end: 201705
  2. SIMVASTATIN. [Interacting]
     Active Substance: SIMVASTATIN
     Indication: HYPERCHOLESTEROLAEMIA
     Dosage: 40.0MG UNKNOWN
     Route: 048
     Dates: start: 201705, end: 20170613
  3. GLICLAZIDE [Concomitant]
     Active Substance: GLICLAZIDE
     Indication: DIABETES MELLITUS
     Route: 048
  4. OMEPRAZOLE. [Concomitant]
     Active Substance: OMEPRAZOLE
     Indication: DYSPEPSIA
     Route: 048
  5. SIMVASTATIN. [Interacting]
     Active Substance: SIMVASTATIN
     Indication: HYPERCHOLESTEROLAEMIA
     Dosage: 80.0MG UNKNOWN
     Route: 048
     Dates: start: 19990101, end: 201705
  6. BRILIQUE [Interacting]
     Active Substance: TICAGRELOR
     Indication: STENT PLACEMENT
     Route: 048
     Dates: start: 20170125
  7. BISOPROLOL FUMARATE. [Concomitant]
     Active Substance: BISOPROLOL FUMARATE
     Indication: MYOCARDIAL ISCHAEMIA
     Route: 048
  8. SILDENAFIL CITRATE. [Concomitant]
     Active Substance: SILDENAFIL CITRATE
     Indication: ERECTILE DYSFUNCTION
     Route: 048
  9. BRILIQUE [Suspect]
     Active Substance: TICAGRELOR
     Indication: MYOCARDIAL ISCHAEMIA
     Route: 048
     Dates: start: 20170125
  10. SIMVASTATIN. [Interacting]
     Active Substance: SIMVASTATIN
     Indication: MYOCARDIAL ISCHAEMIA
     Dosage: 40.0MG UNKNOWN
     Route: 048
     Dates: start: 201705, end: 20170613

REACTIONS (9)
  - Malaise [Unknown]
  - Anaemia [Unknown]
  - White blood cell count increased [Recovering/Resolving]
  - Myelofibrosis [Not Recovered/Not Resolved]
  - Drug interaction [Unknown]
  - Splenomegaly [Recovering/Resolving]
  - Hyperhidrosis [Unknown]
  - Abnormal loss of weight [Unknown]
  - Dyspnoea [Unknown]

NARRATIVE: CASE EVENT DATE: 201704
